FAERS Safety Report 21316035 (Version 1)
Quarter: 2022Q3

REPORT INFORMATION
  Report Type: Spontaneous
  Country: CN (occurrence: CN)
  Receive Date: 20220910
  Receipt Date: 20220910
  Transmission Date: 20221027
  Serious: Yes (Hospitalization, Other)
  Sender: FDA-Public Use
  Company Number: CN-009507513-2209CHN001701

PATIENT
  Age: 89 Year
  Sex: Male
  Weight: 64 kg

DRUGS (3)
  1. CILASTATIN SODIUM\IMIPENEM [Suspect]
     Active Substance: CILASTATIN SODIUM\IMIPENEM
     Indication: Pneumonia
     Dosage: 500 MG, Q12H
     Route: 041
     Dates: start: 20220630, end: 20220630
  2. CILASTATIN SODIUM\IMIPENEM [Suspect]
     Active Substance: CILASTATIN SODIUM\IMIPENEM
     Dosage: 500 MG, Q12H
     Route: 041
     Dates: start: 20220705, end: 20220705
  3. DULOXETINE HYDROCHLORIDE [Concomitant]
     Active Substance: DULOXETINE HYDROCHLORIDE
     Indication: Depression
     Dosage: 30 MG, QD
     Route: 048
     Dates: start: 20220630, end: 20220705

REACTIONS (13)
  - Hallucination, visual [Recovered/Resolved]
  - Hallucination, visual [Recovering/Resolving]
  - Mental disorder [Recovered/Resolved]
  - Depression [Unknown]
  - Agitation [Recovered/Resolved]
  - Disorganised speech [Recovered/Resolved]
  - Agitation [Recovered/Resolved]
  - Disorganised speech [Recovered/Resolved]
  - Sleep disorder [Recovered/Resolved]
  - Irregular sleep wake rhythm disorder [Recovered/Resolved]
  - Disorganised speech [Recovering/Resolving]
  - Sleep disorder [Recovering/Resolving]
  - Irregular sleep wake rhythm disorder [Recovering/Resolving]

NARRATIVE: CASE EVENT DATE: 20220601
